FAERS Safety Report 24909169 (Version 1)
Quarter: 2025Q1

REPORT INFORMATION
  Report Type: Spontaneous
  Country: US (occurrence: None)
  Receive Date: 20250130
  Receipt Date: 20250130
  Transmission Date: 20250409
  Serious: Yes (Hospitalization)
  Sender: FDA-CTU
  Company Number: None

PATIENT
  Sex: Male

DRUGS (2)
  1. TOLVAPTAN [Suspect]
     Active Substance: TOLVAPTAN
     Indication: Hyponatraemia
     Dosage: OTHER FREQUENCY : MON, WED, AND FRI;?
     Route: 048
     Dates: start: 202406
  2. TOLVAPTAN [Suspect]
     Active Substance: TOLVAPTAN
     Indication: Blood osmolarity decreased

REACTIONS (1)
  - Hyponatraemia [None]
